FAERS Safety Report 25245216 (Version 1)
Quarter: 2025Q2

REPORT INFORMATION
  Report Type: Spontaneous
  Country: US (occurrence: US)
  Receive Date: 20250428
  Receipt Date: 20250428
  Transmission Date: 20250717
  Serious: Yes (Other)
  Sender: INSMED
  Company Number: US-INSMED, INC.-2025-01526-US

PATIENT
  Sex: Female

DRUGS (1)
  1. AMIKACIN SULFATE [Suspect]
     Active Substance: AMIKACIN SULFATE
     Indication: Mycobacterium abscessus infection
     Route: 055

REACTIONS (2)
  - Respiratory symptom [Recovered/Resolved]
  - Off label use [Unknown]
